FAERS Safety Report 4352334-7 (Version None)
Quarter: 2004Q2

REPORT INFORMATION
  Report Type: 
  Country: None (occurrence: None)
  Receive Date: 20040427
  Receipt Date: 20030314
  Transmission Date: 20050107
  Serious: Yes (Disabling)
  Sender: FDA-Public Use
  Company Number: WAES 0302USA01845

PATIENT
  Age: 50 Year
  Sex: Female
  Weight: 43.5453 kg

DRUGS (6)
  1. SINGULAIR [Suspect]
     Indication: ASTHMA
     Dosage: 10 M/DAILY/PO
     Route: 048
     Dates: start: 20021018, end: 20030201
  2. TETRACYCLINE [Suspect]
     Indication: ACNE
     Dosage: 200 MG/DAILY/PO
     Route: 048
     Dates: start: 20020301, end: 20030201
  3. COMBIVENT [Concomitant]
  4. PULMICORT [Concomitant]
  5. TEGRETOL [Concomitant]
  6. CALCIUM (UNSPECIFIED) [Concomitant]

REACTIONS (1)
  - RASH [None]
